FAERS Safety Report 4555659-5 (Version None)
Quarter: 2005Q1

REPORT INFORMATION
  Report Type: 
  Country: None (occurrence: None)
  Receive Date: 20050118
  Receipt Date: 20050106
  Transmission Date: 20050727
  Serious: Yes (Hospitalization)
  Sender: FDA-Public Use
  Company Number: 4495

PATIENT
  Age: 80 Year
  Sex: Female

DRUGS (5)
  1. PROPAFENONE HCL [Suspect]
     Dosage: 600 MG ONE TIME DOSE IN ER
     Dates: start: 20041229
  2. ASPIRIN [Concomitant]
  3. ALUMINUM HYDROXIDE AND MAGNESIUM TRISILICATE [Concomitant]
  4. NITROGLYCERIN [Concomitant]
  5. TYLENOL [Concomitant]

REACTIONS (5)
  - BALANCE DISORDER [None]
  - DIZZINESS [None]
  - DYSKINESIA [None]
  - NAUSEA [None]
  - VOMITING [None]
